FAERS Safety Report 20618940 (Version 1)
Quarter: 2022Q1

REPORT INFORMATION
  Report Type: Report from Study
  Country: CA (occurrence: CA)
  Receive Date: 20220322
  Receipt Date: 20220322
  Transmission Date: 20220423
  Serious: Yes (Hospitalization, Other)
  Sender: FDA-Public Use
  Company Number: CA-MTPC-MTDA2022-0004967

PATIENT
  Age: 61 Year
  Sex: Female

DRUGS (13)
  1. EDARAVONE [Suspect]
     Active Substance: EDARAVONE
     Indication: Amyotrophic lateral sclerosis
     Dosage: UNK
     Route: 065
     Dates: start: 20210614
  2. EDARAVONE [Suspect]
     Active Substance: EDARAVONE
     Dosage: 60 MILLIGRAM, QD 10 DAYS OUT OF 14 DAYS ON , 14 DAYS OFF
     Route: 065
     Dates: start: 20220222
  3. EDARAVONE [Suspect]
     Active Substance: EDARAVONE
     Dosage: 60 MILLIGRAM, QD 10 DAYS OUT OF 14 DAYS ON , 14 DAYS OFF
     Route: 065
     Dates: start: 20220223
  4. EDARAVONE [Suspect]
     Active Substance: EDARAVONE
     Dosage: 60 MILLIGRAM, QD 10 DAYS OUT OF 14 DAYS ON , 14 DAYS OFF
     Route: 065
     Dates: start: 20220226
  5. EDARAVONE [Suspect]
     Active Substance: EDARAVONE
     Dosage: 60 MILLIGRAM, QD 10 DAYS OUT OF 14 DAYS ON , 14 DAYS OFF
     Route: 065
     Dates: start: 20220228
  6. EDARAVONE [Suspect]
     Active Substance: EDARAVONE
     Dosage: 60 MILLIGRAM, QD 10 DAYS OUT OF 14 DAYS ON , 14 DAYS OFF
     Route: 065
     Dates: start: 20220303, end: 20220303
  7. EDARAVONE [Suspect]
     Active Substance: EDARAVONE
     Dosage: 60 MILLIGRAM, QD 10 DAYS OUT OF 14 DAYS ON , 14 DAYS OFF
     Route: 065
     Dates: start: 20220304
  8. POTASSIUM [Concomitant]
     Active Substance: POTASSIUM
     Indication: Product used for unknown indication
     Dosage: UNK
     Route: 065
  9. TAMOXIFEN [Concomitant]
     Active Substance: TAMOXIFEN
     Indication: Product used for unknown indication
     Dosage: UNK
     Route: 065
     Dates: start: 2016
  10. LOSEC [Concomitant]
     Active Substance: OMEPRAZOLE
     Indication: Product used for unknown indication
     Dosage: UNK
     Route: 065
  11. HYDROCHLOROTHIAZIDE [Concomitant]
     Active Substance: HYDROCHLOROTHIAZIDE
     Indication: Product used for unknown indication
     Dosage: UNK
     Route: 065
  12. ATENOLOL [Concomitant]
     Active Substance: ATENOLOL
     Indication: Product used for unknown indication
     Dosage: UNK
     Route: 065
  13. CANDESARTAN [Concomitant]
     Active Substance: CANDESARTAN
     Indication: Product used for unknown indication
     Dosage: UNK
     Route: 065

REACTIONS (7)
  - Pneumonia [Unknown]
  - Blood electrolytes decreased [Unknown]
  - Blood potassium decreased [Unknown]
  - Secretion discharge [Unknown]
  - Cough [Unknown]
  - Erythema [Unknown]
  - Incorrect product administration duration [Recovered/Resolved]

NARRATIVE: CASE EVENT DATE: 20220223
